FAERS Safety Report 10217877 (Version 2)
Quarter: 2014Q2

REPORT INFORMATION
  Report Type: Report from Study
  Country: US (occurrence: US)
  Receive Date: 20140605
  Receipt Date: 20140605
  Transmission Date: 20141212
  Serious: Yes (Hospitalization)
  Sender: FDA-Public Use
  Company Number: US-ROCHE-1363591

PATIENT
  Age: 58 Year
  Sex: Female
  Weight: 65.83 kg

DRUGS (6)
  1. HERCEPTIN [Suspect]
     Indication: BREAST CANCER
     Route: 042
     Dates: start: 20140117, end: 20140502
  2. HERCEPTIN [Suspect]
     Route: 042
     Dates: start: 20140523
  3. PERJETA [Suspect]
     Indication: BREAST CANCER
     Route: 042
     Dates: start: 20140117, end: 20140502
  4. TAXOTERE [Concomitant]
     Indication: BREAST CANCER
     Route: 042
     Dates: start: 20140117, end: 20140502
  5. CARBOPLATIN [Concomitant]
     Indication: BREAST CANCER
     Route: 042
     Dates: start: 20140117, end: 20140502
  6. TRIAMTERENE/HCTZ [Concomitant]
     Route: 048
     Dates: start: 20140411

REACTIONS (8)
  - Anal pruritus [Not Recovered/Not Resolved]
  - Rectal fissure [Unknown]
  - Haemorrhoids [Unknown]
  - Pyrexia [Recovered/Resolved]
  - Swelling [Not Recovered/Not Resolved]
  - Red blood cell count decreased [Recovered/Resolved]
  - White blood cell count decreased [Recovered/Resolved]
  - Myalgia [Recovered/Resolved]
